FAERS Safety Report 8827750 (Version 1)
Quarter: 2012Q4

REPORT INFORMATION
  Report Type: 
  Country: ES (occurrence: ES)
  Receive Date: 20121005
  Receipt Date: 20121005
  Transmission Date: 20130627
  Serious: Yes (Death, Hospitalization)
  Sender: FDA-Public Use
  Company Number: ES-B.I. PHARMACEUTICALS,INC./RIDGEFIELD-2012-ES-00376ES

PATIENT
  Age: 87 Year
  Sex: Male

DRUGS (6)
  1. PRADAXA [Suspect]
     Indication: ATRIAL FIBRILLATION
     Dosage: 220 mg
     Route: 048
     Dates: start: 20120327, end: 20120421
  2. DEXKETOPROFEN [Suspect]
     Indication: PAIN
     Route: 048
     Dates: start: 20120327, end: 20120406
  3. CITALOPRAM [Suspect]
     Indication: DEPRESSION
     Dosage: 20 mg
     Route: 048
     Dates: start: 20120405, end: 20120421
  4. LORAZEPAM [Concomitant]
     Indication: INSOMNIA
     Dosage: 0.5 mg
     Route: 048
     Dates: start: 20120327, end: 20120421
  5. DIGOXINA [Concomitant]
     Indication: ATRIAL FIBRILLATION
     Dosage: 0.25 mg
     Route: 048
     Dates: start: 20120209, end: 20120421
  6. SINEMET PLUS [Concomitant]
     Indication: EXTRAPYRAMIDAL DISORDER
     Dosage: strength: 25/100. Daily dose: 3 DF (fixed dose)
     Route: 048
     Dates: start: 20120327, end: 20120421

REACTIONS (7)
  - Coagulation time shortened [Fatal]
  - Rectal haemorrhage [Fatal]
  - Hypovolaemic shock [Fatal]
  - Vomiting [Fatal]
  - Diarrhoea [Fatal]
  - Anaemia [Fatal]
  - Drug interaction [Fatal]
